FAERS Safety Report 25849318 (Version 2)
Quarter: 2025Q4

REPORT INFORMATION
  Report Type: Report from Study
  Country: US (occurrence: US)
  Receive Date: 20250925
  Receipt Date: 20251003
  Transmission Date: 20260118
  Serious: Yes (Death, Hospitalization, Other)
  Sender: ABBVIE
  Company Number: US-ABBVIE-6476528

PATIENT
  Age: 71 Year
  Sex: Female
  Weight: 38.555 kg

DRUGS (1)
  1. CREON [Suspect]
     Active Substance: PANCRELIPASE AMYLASE\PANCRELIPASE LIPASE\PANCRELIPASE PROTEASE
     Indication: Pancreatic carcinoma
     Dosage: FREQUENCY TEXT: 3 CAPS WITH MEAL AND 2 WITH SNACK?FORM STRENGTH-24000 UNIT
     Route: 048
     Dates: start: 2023

REACTIONS (15)
  - Pancreatic carcinoma recurrent [Fatal]
  - Incoherent [Not Recovered/Not Resolved]
  - Pancreatic carcinoma metastatic [Fatal]
  - Hepatic enzyme increased [Not Recovered/Not Resolved]
  - Multiple organ dysfunction syndrome [Fatal]
  - Inappropriate schedule of product administration [Not Recovered/Not Resolved]
  - Bone marrow failure [Fatal]
  - Carbohydrate antigen 19-9 increased [Not Recovered/Not Resolved]
  - Renal failure [Fatal]
  - Mental impairment [Not Recovered/Not Resolved]
  - Diarrhoea [Not Recovered/Not Resolved]
  - Blood calcium decreased [Not Recovered/Not Resolved]
  - Blood creatinine increased [Not Recovered/Not Resolved]
  - Dehydration [Not Recovered/Not Resolved]
  - Haemoglobin decreased [Not Recovered/Not Resolved]

NARRATIVE: CASE EVENT DATE: 20240101
